FAERS Safety Report 11190328 (Version 1)
Quarter: 2015Q2

REPORT INFORMATION
  Report Type: Spontaneous
  Country: US (occurrence: None)
  Receive Date: 20150603
  Receipt Date: 20150603
  Transmission Date: 20150821
  Serious: No
  Sender: FDA-Public Use
  Company Number: 2015TASUS000747

PATIENT
  Age: 62 Year
  Sex: Female
  Weight: 68 kg

DRUGS (12)
  1. ALEVE [Concomitant]
     Active Substance: NAPROXEN SODIUM
  2. COQ10 (UBIDECARENONE) [Concomitant]
     Active Substance: UBIDECARENONE
  3. HETLIOZ [Suspect]
     Active Substance: TASIMELTEON
     Indication: CIRCADIAN RHYTHM SLEEP DISORDER
     Route: 048
     Dates: start: 2014
  4. LANSOPRAZOLE (LANSOPRAZOLE) [Concomitant]
     Active Substance: LANSOPRAZOLE
  5. FISH OIL (COD-LIVER OIL) [Concomitant]
  6. MULTIVITAMIN (VITAMINS NOS) [Concomitant]
     Active Substance: VITAMINS
  7. LORATADINE (LORATADINE) (LORATADINE) [Concomitant]
     Active Substance: LORATADINE
  8. GINGER (GINGER) [Concomitant]
  9. MAGNESIUM (MAGNESIUM) [Concomitant]
     Active Substance: MAGNESIUM
  10. LOSARTAN (LOSARTAN) [Concomitant]
     Active Substance: LOSARTAN
  11. ZETIA [Concomitant]
     Active Substance: EZETIMIBE
  12. NIACIN (NICOTINIC ACID) [Concomitant]

REACTIONS (1)
  - Nightmare [None]

NARRATIVE: CASE EVENT DATE: 20150412
